FAERS Safety Report 6355916-6 (Version None)
Quarter: 2009Q3

REPORT INFORMATION
  Report Type: 
  Country: None (occurrence: None)
  Receive Date: 20090911
  Receipt Date: 20090911
  Transmission Date: 20100115
  Serious: Yes (Other)
  Sender: FDA-Public Use
  Company Number: None

PATIENT
  Sex: Female
  Weight: 49.8957 kg

DRUGS (1)
  1. TOPIRAMATE [Suspect]
     Indication: MIGRAINE
     Dosage: 25MG - WK 1; 50MG - WK 2; 75MG WK 3; 100MG - WK 4 EVERY NIGHT
     Dates: start: 20090808

REACTIONS (1)
  - ALOPECIA [None]
